FAERS Safety Report 13089879 (Version 1)
Quarter: 2017Q1

REPORT INFORMATION
  Report Type: Spontaneous
  Country: ZA (occurrence: ZA)
  Receive Date: 20170105
  Receipt Date: 20170105
  Transmission Date: 20170428
  Serious: Yes (Death)
  Sender: FDA-Public Use
  Company Number: ZA-BAYER-2016-224436

PATIENT

DRUGS (3)
  1. AMIKACIN [Concomitant]
     Active Substance: AMIKACIN
     Dosage: UNK
  2. RIFAMPICIN [Concomitant]
     Active Substance: RIFAMPIN
     Dosage: UNK
  3. AVELON [Suspect]
     Active Substance: MOXIFLOXACIN HYDROCHLORIDE
     Indication: TUBERCULOSIS GASTROINTESTINAL
     Dosage: UNK
     Route: 048

REACTIONS (2)
  - Off label use [None]
  - Death [Fatal]
